FAERS Safety Report 8249694-3 (Version None)
Quarter: 2012Q2

REPORT INFORMATION
  Report Type: 
  Country: None (occurrence: None)
  Receive Date: 20120402
  Receipt Date: 20120326
  Transmission Date: 20120825
  Serious: Yes (Death, Hospitalization, Other)
  Sender: FDA-Public Use
  Company Number: US-CELGENEUS-163-21880-12031789

PATIENT
  Sex: Female
  Weight: 49.032 kg

DRUGS (6)
  1. OMEPRAZOLE [Concomitant]
     Route: 065
  2. GABAPENTIN [Concomitant]
     Route: 065
  3. CLONAZEPAM [Concomitant]
     Route: 065
  4. REVLIMID [Suspect]
     Dosage: 10 MILLIGRAM
     Route: 048
     Dates: start: 20111004, end: 20120228
  5. SIMVASTATIN [Concomitant]
     Route: 065
  6. REVLIMID [Suspect]
     Dosage: 10 MILLIGRAM
     Route: 048
     Dates: start: 20110916

REACTIONS (4)
  - PNEUMONIA [None]
  - DEATH [None]
  - MULTIPLE MYELOMA [None]
  - ASTHENIA [None]
